FAERS Safety Report 8837204 (Version 3)
Quarter: 2012Q4

REPORT INFORMATION
  Report Type: Report from Study
  Country: FR (occurrence: FR)
  Receive Date: 20121011
  Receipt Date: 20121025
  Transmission Date: 20130627
  Serious: Yes (Death)
  Sender: FDA-Public Use
  Company Number: FR-ROCHE-1141253

PATIENT
  Sex: Female

DRUGS (10)
  1. RANIBIZUMAB [Suspect]
     Indication: AGE-RELATED MACULAR DEGENERATION
     Dosage: in right eye
     Route: 050
     Dates: start: 20080826, end: 20111129
  2. RANIBIZUMAB [Suspect]
     Dosage: in right eye
     Route: 050
     Dates: start: 20080930
  3. RANIBIZUMAB [Suspect]
     Dosage: in left eye
     Route: 050
     Dates: start: 20081106
  4. RANIBIZUMAB [Suspect]
     Dosage: In left eye
     Route: 050
     Dates: start: 20081216
  5. RANIBIZUMAB [Suspect]
     Dosage: In right eye
     Route: 050
     Dates: start: 20090113
  6. RANIBIZUMAB [Suspect]
     Dosage: In left eye
     Route: 050
     Dates: start: 20091015
  7. RANIBIZUMAB [Suspect]
     Dosage: In right eye
     Route: 050
     Dates: start: 20091020
  8. RANIBIZUMAB [Suspect]
     Dosage: In left eye
     Route: 050
     Dates: start: 20100316
  9. RANIBIZUMAB [Suspect]
     Dosage: In left eye
     Route: 050
     Dates: start: 20101214
  10. RANIBIZUMAB [Suspect]
     Dosage: In left eye
     Route: 050
     Dates: start: 20110222

REACTIONS (2)
  - Death [Fatal]
  - Inappropriate schedule of drug administration [Unknown]
